FAERS Safety Report 9311581 (Version 1)
Quarter: 2013Q2

REPORT INFORMATION
  Report Type: Spontaneous
  Country: GR (occurrence: GR)
  Receive Date: 20130528
  Receipt Date: 20130528
  Transmission Date: 20140414
  Serious: Yes (Other)
  Sender: FDA-Public Use
  Company Number: GR-BAYER-2013-062983

PATIENT
  Age: 31 Year
  Sex: Male
  Weight: 65 kg

DRUGS (2)
  1. CIPRO XR [Suspect]
     Indication: LIVER ABSCESS
     Dosage: 500 MG, UNK
     Route: 048
     Dates: start: 20130327, end: 20130415
  2. METRONIDAZOLE [Suspect]
     Indication: LIVER ABSCESS
     Dosage: 500 MG, UNK
     Route: 048
     Dates: start: 20130327, end: 20130415

REACTIONS (1)
  - Posterior reversible encephalopathy syndrome [Not Recovered/Not Resolved]
